FAERS Safety Report 8549858 (Version 3)
Quarter: 2013Q4

REPORT INFORMATION
  Report Type: Spontaneous
  Country: GB (occurrence: GB)
  Receive Date: 20120507
  Receipt Date: 20131105
  Transmission Date: 20140711
  Serious: Yes (Death, Other)
  Sender: FDA-Public Use
  Company Number: GB-009507513-1205USA00361

PATIENT
  Age: 89 Year
  Sex: Male
  Weight: 84.5 kg

DRUGS (1)
  1. COSOPT [Suspect]
     Indication: GLAUCOMA
     Dosage: 1 DF, BID
     Route: 047

REACTIONS (4)
  - Death [Fatal]
  - Product quality issue [Unknown]
  - Overdose [Unknown]
  - Local swelling [Unknown]
